FAERS Safety Report 8597995 (Version 3)
Quarter: 2014Q2

REPORT INFORMATION
  Report Type: Spontaneous
  Country: US (occurrence: US)
  Receive Date: 20120605
  Receipt Date: 20140401
  Transmission Date: 20141212
  Serious: No
  Sender: FDA-Public Use
  Company Number: US-ASTRAZENECA-2012SE35715

PATIENT
  Sex: Male
  Weight: 108.9 kg

DRUGS (22)
  1. NEXIUM [Suspect]
     Indication: GASTROOESOPHAGEAL REFLUX DISEASE
     Dosage: FOR A COUPLE OF YEARS, ONCE DAILY
     Route: 048
     Dates: start: 2006, end: 2008
  2. NEXIUM [Suspect]
     Indication: GASTROOESOPHAGEAL REFLUX DISEASE
     Route: 048
     Dates: start: 2009
  3. OMEPRAZOLE [Suspect]
     Indication: GASTRIC DISORDER
     Route: 048
     Dates: start: 2009
  4. OMEPRAZOLE [Suspect]
     Indication: GASTRIC DISORDER
     Route: 048
     Dates: start: 20110121
  5. PRILOSEC OTC [Suspect]
     Route: 048
  6. ACIPHEX [Concomitant]
     Dosage: ONLY ONE TIME
  7. RANITIDINE [Concomitant]
     Indication: DYSPEPSIA
     Dates: start: 201108
  8. CIMETIDINE [Concomitant]
  9. TUMS [Concomitant]
  10. FENOFIBRATE [Concomitant]
     Indication: BLOOD CHOLESTEROL
  11. FLUTICASONE [Concomitant]
     Indication: SEASONAL ALLERGY
  12. GEODON [Concomitant]
     Indication: BIPOLAR DISORDER
  13. SYNTHROID [Concomitant]
     Indication: THYROID DISORDER
  14. FLAGYL [Concomitant]
     Indication: ANTIBIOTIC THERAPY
     Dates: start: 201212
  15. CEPHALEXIN [Concomitant]
     Indication: ANTIBIOTIC THERAPY
     Dates: start: 201202
  16. PREDNISONE [Concomitant]
     Indication: MULTIPLE ALLERGIES
     Dates: start: 201202
  17. ALBUTEROL [Concomitant]
     Indication: ASTHMA
     Dates: start: 201202
  18. TRICOR [Concomitant]
     Indication: BLOOD CHOLESTEROL
     Dates: start: 201108
  19. CYMBALTA [Concomitant]
     Indication: DEPRESSION
  20. SERTRALINE [Concomitant]
     Indication: DEPRESSION
  21. WELLBUTRIN [Concomitant]
     Indication: DEPRESSION
     Dates: start: 201111
  22. SEROQUEL [Concomitant]
     Dates: start: 20070804

REACTIONS (6)
  - Lower limb fracture [Unknown]
  - Ankle fracture [Unknown]
  - Fall [Unknown]
  - Osteoporosis [Unknown]
  - Multiple fractures [Unknown]
  - Tibia fracture [Unknown]
